FAERS Safety Report 8759359 (Version 1)
Quarter: 2012Q4

REPORT INFORMATION
  Report Type: 
  Country: US (occurrence: US)
  Receive Date: 20120829
  Receipt Date: 20120829
  Transmission Date: 20130627
  Serious: No
  Sender: FDA-Public Use
  Company Number: US-JNJFOC-20120803431

PATIENT
  Age: 3 None
  Sex: Female

DRUGS (2)
  1. INVEGA SUSTENNA [Suspect]
     Indication: SCHIZOPHRENIA
     Route: 030
     Dates: start: 2012
  2. THORAZINE [Concomitant]
     Route: 065

REACTIONS (2)
  - Blood prolactin increased [Not Recovered/Not Resolved]
  - Breast discharge [Not Recovered/Not Resolved]
